FAERS Safety Report 7677589-2 (Version None)
Quarter: 2011Q3

REPORT INFORMATION
  Report Type: 
  Country: None (occurrence: None)
  Receive Date: 20110811
  Receipt Date: 20110811
  Transmission Date: 20111222
  Serious: Yes (Other)
  Sender: FDA-Public Use
  Company Number: None

PATIENT
  Age: 50 Year
  Sex: Male
  Weight: 85.275 kg

DRUGS (1)
  1. MUCINEX [Suspect]
     Dosage: MUCINEX
     Route: 048
     Dates: start: 20110731, end: 20110801

REACTIONS (3)
  - FEEDING DISORDER [None]
  - COMMUNICATION DISORDER [None]
  - CONFUSIONAL STATE [None]
